FAERS Safety Report 14394644 (Version 1)
Quarter: 2018Q1

REPORT INFORMATION
  Report Type: Spontaneous
  Country: NL (occurrence: NL)
  Receive Date: 20180116
  Receipt Date: 20180116
  Transmission Date: 20180509
  Serious: Yes (Life-Threatening)
  Sender: FDA-Public Use
  Company Number: NL-PFIZER INC-2018013012

PATIENT
  Age: 74 Year
  Sex: Male
  Weight: 65 kg

DRUGS (9)
  1. CROMOGLICIN [Concomitant]
     Dosage: UNK
     Route: 050
  2. FLUTICASON [Concomitant]
     Active Substance: FLUTICASONE
     Dosage: UNK
     Route: 050
  3. CAPECITABINE. [Concomitant]
     Active Substance: CAPECITABINE
     Dosage: UNK
     Route: 050
  4. OXALIPLATINE PFIZER [Suspect]
     Active Substance: OXALIPLATIN
     Indication: COLON CANCER
     Dosage: 235 MG, UNK
     Route: 050
  5. BEVACIZUMAB. [Concomitant]
     Active Substance: BEVACIZUMAB
     Dosage: 7.5 MG/M2
     Route: 050
  6. LEVOCETIRIZINE [Concomitant]
     Active Substance: LEVOCETIRIZINE
     Dosage: UNK
     Route: 050
  7. SILDENAFIL CITRATE. [Concomitant]
     Active Substance: SILDENAFIL CITRATE
     Dosage: UNK
     Route: 050
  8. CAPECITABINE. [Concomitant]
     Active Substance: CAPECITABINE
     Dosage: UNK
  9. NIFEDIPINE. [Concomitant]
     Active Substance: NIFEDIPINE
     Route: 050

REACTIONS (4)
  - Defaecation urgency [Recovered/Resolved]
  - Bradycardia [Recovered/Resolved]
  - Anaphylactic reaction [Recovered/Resolved]
  - Hypotension [Recovered/Resolved]

NARRATIVE: CASE EVENT DATE: 20171123
